FAERS Safety Report 12943143 (Version 1)
Quarter: 2016Q4

REPORT INFORMATION
  Report Type: Spontaneous
  Country: JP (occurrence: JP)
  Receive Date: 20161115
  Receipt Date: 20161115
  Transmission Date: 20170207
  Serious: Yes (Other)
  Sender: FDA-Public Use
  Company Number: JP-PFIZER INC-2016443563

PATIENT
  Age: 20 Year
  Sex: Female
  Weight: 50 kg

DRUGS (27)
  1. CRAVIT [Suspect]
     Active Substance: LEVOFLOXACIN
     Indication: TUBERCULOSIS
     Dosage: 500 MG, DAILY
     Route: 048
     Dates: start: 20150806
  2. FAMOTIDINE. [Concomitant]
     Active Substance: FAMOTIDINE
     Indication: PROPHYLAXIS
     Dosage: UNK
     Dates: start: 201505
  3. MAGLAX [Concomitant]
     Active Substance: MAGNESIUM OXIDE
     Indication: PROPHYLAXIS
     Dosage: UNK
     Dates: start: 20150803
  4. LAC-B GRANULAR POWDER N [Concomitant]
     Indication: PSEUDOMEMBRANOUS COLITIS
     Dosage: UNK
     Dates: start: 20151019
  5. PRIMPERAN [Concomitant]
     Active Substance: METOCLOPRAMIDE HYDROCHLORIDE
     Indication: NAUSEA
     Dosage: UNK
     Dates: start: 20150812, end: 20150812
  6. ALUMINO-NIPPAS CALCIUM [Suspect]
     Active Substance: AMINOSALICYLATE CALCIUM ALUMINIUM
     Indication: TUBERCULOSIS
     Dosage: 10 MG, DAILY
     Route: 048
     Dates: start: 20150806, end: 20151106
  7. KANAMYCIN MONOSULFAT [Suspect]
     Active Substance: BEKANAMYCIN SULFATE
     Indication: TUBERCULOSIS
     Dosage: 750 MG, DAILY
     Route: 030
     Dates: start: 20150806
  8. MAGMITT [Concomitant]
     Active Substance: MAGNESIUM OXIDE
     Indication: PROPHYLAXIS
     Dosage: UNK
     Dates: start: 20150803
  9. OLOPATADINE HYDROCHLORIDE. [Concomitant]
     Active Substance: OLOPATADINE HYDROCHLORIDE
     Indication: EOSINOPHIL COUNT INCREASED
     Dosage: UNK
     Dates: start: 20151105
  10. PYRAMIDE [Concomitant]
     Active Substance: PYRAZINAMIDE
     Indication: TUBERCULOSIS
     Dosage: UNK
     Dates: start: 20150519, end: 20150824
  11. PYDOXAL [Concomitant]
     Active Substance: PYRIDOXAL
     Indication: PROPHYLAXIS
     Dosage: UNK
     Dates: start: 20150519, end: 20151002
  12. SP TROCHES [Concomitant]
     Active Substance: DEQUALINIUM CHLORIDE
     Indication: OROPHARYNGEAL PAIN
     Dosage: UNK
     Dates: start: 20150810, end: 20150810
  13. ZYVOX [Suspect]
     Active Substance: LINEZOLID
     Indication: TUBERCULOSIS
     Dosage: 600 MG, DAILY
     Route: 048
     Dates: start: 20150825, end: 20151002
  14. MYCOBUTIN [Suspect]
     Active Substance: RIFABUTIN
     Indication: TUBERCULOSIS
     Dosage: 300 MG, DAILY
     Route: 048
     Dates: start: 20150904, end: 20150905
  15. DELTYBA [Suspect]
     Active Substance: DELAMANID
     Indication: TUBERCULOSIS
     Dosage: 200 MG, DAILY
     Route: 048
     Dates: start: 20150813, end: 20160218
  16. CYCLOSERINE. [Suspect]
     Active Substance: CYCLOSERINE
     Indication: TUBERCULOSIS
     Dosage: 500 MG, DAILY
     Route: 048
     Dates: start: 20150806
  17. ETHAMBUTOL HYDROCHLORIDE. [Concomitant]
     Active Substance: ETHAMBUTOL HYDROCHLORIDE
     Dosage: UNK
     Dates: start: 2016, end: 2016
  18. NAUZELIN [Concomitant]
     Active Substance: DOMPERIDONE
     Indication: PROPHYLAXIS
     Dosage: UNK
     Dates: start: 20150806
  19. NAUZELIN [Concomitant]
     Active Substance: DOMPERIDONE
     Indication: VOMITING
  20. SODIUM GUALENATE HYDRATE [Concomitant]
     Active Substance: SODIUM GUALENATE MONOHYDRATE
     Indication: OROPHARYNGEAL PAIN
     Dosage: 0.1 %, UNK
     Dates: start: 20150811, end: 20150811
  21. GASCON [Concomitant]
     Active Substance: DIMETHICONE
     Indication: NAUSEA
     Dosage: UNK
     Dates: start: 20150813, end: 20150813
  22. ETHAMBUTOL HYDROCHLORIDE. [Concomitant]
     Active Substance: ETHAMBUTOL HYDROCHLORIDE
     Indication: TUBERCULOSIS
     Dosage: UNK
     Dates: start: 20150519, end: 20150805
  23. KIPRES [Concomitant]
     Active Substance: MONTELUKAST SODIUM
     Indication: EOSINOPHIL COUNT INCREASED
     Dosage: UNK
     Dates: start: 20151110
  24. ISONIAZID. [Concomitant]
     Active Substance: ISONIAZID
     Indication: TUBERCULOSIS
     Dosage: UNK
     Dates: start: 2015, end: 2015
  25. RIFAMPICIN [Concomitant]
     Active Substance: RIFAMPIN
     Indication: TUBERCULOSIS
     Dosage: UNK
     Dates: start: 20150519, end: 20150805
  26. ANTIBIOTICS-RESISTANT LACTIC ACID BACTERIAE [Concomitant]
     Active Substance: UNSPECIFIED INGREDIENT
     Indication: PROPHYLAXIS
     Dosage: UNK
     Dates: start: 20150905
  27. METRONIDAZOLE. [Concomitant]
     Active Substance: METRONIDAZOLE
     Indication: PSEUDOMEMBRANOUS COLITIS
     Dosage: UNK
     Dates: start: 20151015, end: 20151022

REACTIONS (6)
  - Pseudomembranous colitis [Recovered/Resolved]
  - White blood cell count decreased [Recovered/Resolved]
  - Vomiting [Recovered/Resolved]
  - Anaemia [Recovered/Resolved]
  - Neutropenia [Unknown]
  - Eosinophilia [Recovered/Resolved]

NARRATIVE: CASE EVENT DATE: 201509
